FAERS Safety Report 4356716-9 (Version None)
Quarter: 2004Q2

REPORT INFORMATION
  Report Type: 
  Country: None (occurrence: None)
  Receive Date: 20040507
  Receipt Date: 20040428
  Transmission Date: 20050107
  Serious: Yes (Hospitalization)
  Sender: FDA-Public Use
  Company Number: QUIN-244

PATIENT
  Age: 5 Year
  Sex: Male
  Weight: 23.2 kg

DRUGS (16)
  1. PRUXODIN CREAM [Suspect]
     Indication: PRURITUS
     Dosage: 1 APPLICATION ONCE TP
     Route: 061
     Dates: start: 20040220, end: 20040220
  2. MORPHINE [Concomitant]
  3. ACETAMINOPHEN AND HYDROCODONE BITARTRATE [Concomitant]
  4. HYDROXYZINE [Concomitant]
  5. MULTI-VITAMINS [Concomitant]
  6. ASCORBIC ACID [Concomitant]
  7. FOLIC ACID [Concomitant]
  8. VANCOMYCIN [Concomitant]
  9. CEFEPIME [Concomitant]
  10. DIPHENHYDRAMINE HCL [Concomitant]
  11. OMEPRAZOLE [Concomitant]
  12. PSYLLIUM [Concomitant]
  13. CLARITIN [Concomitant]
  14. METRONIDAZOLE [Concomitant]
  15. FENTANYL [Concomitant]
  16. EUCERIN CREME [Concomitant]

REACTIONS (7)
  - APNOEIC ATTACK [None]
  - COMA [None]
  - HEART RATE INCREASED [None]
  - HYPOTENSION [None]
  - OVERDOSE [None]
  - RESPIRATORY DEPRESSION [None]
  - SOMNOLENCE [None]
